FAERS Safety Report 7442931-4 (Version None)
Quarter: 2011Q2

REPORT INFORMATION
  Report Type: 
  Country: None (occurrence: None)
  Receive Date: 20110428
  Receipt Date: 20110426
  Transmission Date: 20111010
  Serious: Yes (Other)
  Sender: FDA-Public Use
  Company Number: US-TEVA-226322USA

PATIENT
  Sex: Female

DRUGS (5)
  1. FOLIC ACID [Concomitant]
  2. CYANOCOBALAMIN [Concomitant]
  3. NAPROXEN [Concomitant]
  4. CLARAVIS [Suspect]
     Dosage: 40 MILLIGRAM;
     Route: 048
     Dates: start: 20100210, end: 20100224
  5. ORAL CONTRACEPTIVE NOS [Concomitant]

REACTIONS (2)
  - UNINTENDED PREGNANCY [None]
  - ABDOMINAL PAIN UPPER [None]
